FAERS Safety Report 5345840-X (Version None)
Quarter: 2007Q2

REPORT INFORMATION
  Report Type: 
  Country: None (occurrence: None)
  Receive Date: 20070430
  Receipt Date: 20070205
  Transmission Date: 20071010
  Serious: No
  Sender: FDA-Public Use
  Company Number: 261302

PATIENT
  Sex: Male

DRUGS (2)
  1. LEVEMIR [Suspect]
     Indication: DIABETES MELLITUS INSULIN-DEPENDENT
     Dosage: 50 U, QD, SUBCUTANEOUS
     Route: 058
     Dates: start: 20070101
  2. NOVOLOG [Suspect]
     Indication: DIABETES MELLITUS INSULIN-DEPENDENT
     Dosage: 17 IU, TID, SUBCUTANEOUS
     Route: 058
     Dates: start: 20070101

REACTIONS (2)
  - BLOOD GLUCOSE INCREASED [None]
  - RASH [None]
